FAERS Safety Report 9602391 (Version 1)
Quarter: 2013Q4

REPORT INFORMATION
  Report Type: Spontaneous
  Country: US (occurrence: US)
  Receive Date: 20131007
  Receipt Date: 20131007
  Transmission Date: 20140711
  Serious: No
  Sender: FDA-Public Use
  Company Number: US-GLAXOSMITHKLINE-A1039873A

PATIENT
  Age: 21 Year
  Sex: Female

DRUGS (8)
  1. BENLYSTA [Suspect]
     Indication: SYSTEMIC LUPUS ERYTHEMATOSUS
     Route: 042
  2. CLONAZEPAM [Concomitant]
  3. PLAQUENIL [Concomitant]
  4. PREDNISONE [Concomitant]
  5. METHOTREXATE [Concomitant]
  6. SERTRALINE [Concomitant]
  7. NEXIUM [Concomitant]
  8. FOLIC ACID [Concomitant]

REACTIONS (2)
  - Pain [Not Recovered/Not Resolved]
  - Medication error [Unknown]
